FAERS Safety Report 4995239-0 (Version None)
Quarter: 2006Q2

REPORT INFORMATION
  Report Type: 
  Country: None (occurrence: None)
  Receive Date: 20060508
  Receipt Date: 20051031
  Transmission Date: 20061013
  Serious: Yes (Hospitalization, Disabling)
  Sender: FDA-Public Use
  Company Number: US-MERCK-0511USA00339

PATIENT
  Age: 47 Year
  Sex: Male
  Weight: 84 kg

DRUGS (2)
  1. VIOXX [Suspect]
     Indication: BACK PAIN
     Route: 048
     Dates: start: 20020628, end: 20020713
  2. NAPROXEN [Concomitant]
     Indication: BACK PAIN
     Route: 065
     Dates: start: 20020621

REACTIONS (8)
  - ANGINA PECTORIS [None]
  - ANXIETY [None]
  - CEREBROVASCULAR ACCIDENT [None]
  - DEPRESSION [None]
  - ERECTILE DYSFUNCTION [None]
  - LEARNING DISABILITY [None]
  - LOWER LIMB FRACTURE [None]
  - TRANSIENT ISCHAEMIC ATTACK [None]
